FAERS Safety Report 8839417 (Version 1)
Quarter: 2012Q4

REPORT INFORMATION
  Report Type: 
  Country: RU (occurrence: RU)
  Receive Date: 20121015
  Receipt Date: 20121015
  Transmission Date: 20130627
  Serious: Yes (Other)
  Sender: FDA-Public Use
  Company Number: RU-JNJFOC-20121006906

PATIENT
  Age: 4 None
  Sex: Female

DRUGS (3)
  1. EVRA [Suspect]
     Indication: HORMONE THERAPY
     Route: 062
     Dates: start: 2005, end: 2005
  2. EVRA [Suspect]
     Indication: CONTRACEPTION
     Route: 062
     Dates: start: 2005, end: 2005
  3. ANTIBIOTIC (UNSPECIFIED) [Interacting]
     Indication: PRODUCT USED FOR UNKNOWN INDICATION
     Route: 065

REACTIONS (4)
  - Ovarian cyst [Recovered/Resolved]
  - Drug interaction [Recovered/Resolved]
  - Inappropriate schedule of drug administration [Recovered/Resolved]
  - Off label use [Recovered/Resolved]
